FAERS Safety Report 8583801-8 (Version None)
Quarter: 2012Q3

REPORT INFORMATION
  Report Type: 
  Country: None (occurrence: None)
  Receive Date: 20120810
  Receipt Date: 20120730
  Transmission Date: 20120928
  Serious: Yes (Other)
  Sender: FDA-Public Use
  Company Number: US-009507513-2012SP016941

PATIENT

DRUGS (4)
  1. RIBAVIRIN [Suspect]
     Indication: HEPATITIS C
     Dosage: 600 MG, BID
     Route: 048
     Dates: start: 20120214
  2. PEGASYS [Suspect]
     Indication: HEPATITIS C
     Dosage: 180 ?G, QW
     Route: 058
     Dates: start: 20120214
  3. VICTRELIS [Suspect]
     Indication: HEPATITIS C
     Dosage: UNK
     Dates: start: 20120327
  4. TELAPREVIR [Suspect]
     Indication: HEPATITIS C
     Dosage: 375 MG, Q8H
     Dates: start: 20120214, end: 20120228

REACTIONS (12)
  - HAEMORRHAGE [None]
  - GASTROINTESTINAL MUCOSAL DISORDER [None]
  - LOSS OF CONSCIOUSNESS [None]
  - HAEMORRHOIDS [None]
  - IRON DEFICIENCY ANAEMIA [None]
  - DEPRESSION [None]
  - ABDOMINAL DISTENSION [None]
  - ALOPECIA [None]
  - FATIGUE [None]
  - ANORECTAL DISCOMFORT [None]
  - HAEMORRHOIDAL HAEMORRHAGE [None]
  - ANXIETY [None]
